FAERS Safety Report 8761226 (Version 2)
Quarter: 2012Q4

REPORT INFORMATION
  Report Type: 
  Country: US (occurrence: US)
  Receive Date: 20120830
  Receipt Date: 20120920
  Transmission Date: 20130627
  Serious: Yes (Death, Hospitalization)
  Sender: FDA-Public Use
  Company Number: US-GLAXOSMITHKLINE-A0991136A

PATIENT
  Age: 62 Year
  Sex: Female

DRUGS (5)
  1. ADVAIR [Suspect]
     Indication: PRODUCT USED FOR UNKNOWN INDICATION
     Dosage: 1PUFF Twice per day
     Route: 055
     Dates: start: 20081017, end: 20110816
  2. DOXYCYCLINE [Concomitant]
  3. GABAPENTIN [Concomitant]
  4. NEXIUM [Concomitant]
  5. PERCOCET [Concomitant]

REACTIONS (1)
  - Myocardial infarction [Fatal]
